FAERS Safety Report 15851387 (Version 1)
Quarter: 2019Q1

REPORT INFORMATION
  Report Type: Spontaneous
  Country: GB (occurrence: GB)
  Receive Date: 20190122
  Receipt Date: 20190122
  Transmission Date: 20190417
  Serious: Yes (Hospitalization, Other)
  Sender: FDA-Public Use
  Company Number: GB-ALVOGEN-2019-ALVOGEN-098146

PATIENT
  Age: 83 Year
  Sex: Male
  Weight: 60 kg

DRUGS (2)
  1. ATENOLOL. [Suspect]
     Active Substance: ATENOLOL
     Indication: PRODUCT USED FOR UNKNOWN INDICATION
     Route: 065
  2. LIDOCAINE HYDROCHLORIDE. [Interacting]
     Active Substance: LIDOCAINE HYDROCHLORIDE
     Indication: SUTURE INSERTION
     Dosage: STRENGTH: 100MG/10ML,50 MG UNKNOWN
     Route: 003
     Dates: start: 20181213, end: 20181213

REACTIONS (6)
  - Hyporesponsive to stimuli [Recovered/Resolved]
  - Bradycardia [Not Recovered/Not Resolved]
  - Drug interaction [Unknown]
  - Drooling [Recovered/Resolved]
  - Pallor [Recovered/Resolved]
  - Hypotension [Recovered/Resolved]

NARRATIVE: CASE EVENT DATE: 20181213
